FAERS Safety Report 20371681 (Version 1)
Quarter: 2022Q1

REPORT INFORMATION
  Report Type: Spontaneous
  Country: US (occurrence: None)
  Receive Date: 20220124
  Receipt Date: 20220124
  Transmission Date: 20220423
  Serious: No
  Sender: FDA-Public Use
  Company Number: None

PATIENT

DRUGS (1)
  1. METHYLNALTREXONE BROMIDE [Suspect]
     Active Substance: METHYLNALTREXONE BROMIDE

REACTIONS (6)
  - Device leakage [None]
  - Needle issue [None]
  - Product design issue [None]
  - Product label confusion [None]
  - Near death experience [None]
  - Product label issue [None]
